FAERS Safety Report 7787044-7 (Version None)
Quarter: 2011Q3

REPORT INFORMATION
  Report Type: 
  Country: None (occurrence: None)
  Receive Date: 20110929
  Receipt Date: 20110928
  Transmission Date: 20111222
  Serious: Yes (Other)
  Sender: FDA-Public Use
  Company Number: CHPA2011US13020

PATIENT
  Age: 20 Year
  Sex: Male

DRUGS (4)
  1. PREVACID 24 HR [Suspect]
     Indication: RESPIRATORY DISORDER
  2. ACIPHEX [Concomitant]
  3. NEXIUM [Concomitant]
  4. PREVACID 24 HR [Suspect]
     Indication: GASTROOESOPHAGEAL REFLUX DISEASE
     Dosage: 30 MG, QD
     Route: 048

REACTIONS (4)
  - OFF LABEL USE [None]
  - OVERDOSE [None]
  - GASTRITIS [None]
  - OESOPHAGITIS [None]
